FAERS Safety Report 10365744 (Version 1)
Quarter: 2014Q3

REPORT INFORMATION
  Report Type: Spontaneous
  Country: FR (occurrence: FR)
  Receive Date: 20140806
  Receipt Date: 20140806
  Transmission Date: 20150326
  Serious: Yes (Hospitalization)
  Sender: FDA-Public Use
  Company Number: FR-009507513-1408FRA000947

PATIENT
  Age: 80 Year
  Sex: Male

DRUGS (4)
  1. TRIDESONIT [Suspect]
     Active Substance: DESONIDE
     Dosage: UNK
     Route: 003
     Dates: start: 201404, end: 201406
  2. DIPROSONE [Suspect]
     Active Substance: BETAMETHASONE DIPROPIONATE
     Dosage: 1 DF, QD
     Route: 003
     Dates: start: 201404, end: 201406
  3. SORIATANE [Suspect]
     Active Substance: ACITRETIN
     Dosage: 25 MG, QD
     Route: 048
     Dates: start: 20140529, end: 20140601
  4. CLOBEX [Suspect]
     Active Substance: CLOBETASOL PROPIONATE
     Dosage: 1 DF, TIW
     Route: 003
     Dates: start: 20140401, end: 20140601

REACTIONS (2)
  - Meningoencephalitis viral [Not Recovered/Not Resolved]
  - Herpes zoster [Not Recovered/Not Resolved]

NARRATIVE: CASE EVENT DATE: 20140531
